FAERS Safety Report 7211617-3 (Version None)
Quarter: 2010Q4

REPORT INFORMATION
  Report Type: 
  Country: None (occurrence: None)
  Receive Date: 20101227
  Receipt Date: 20101208
  Transmission Date: 20110411
  Serious: Yes (Other)
  Sender: FDA-Public Use
  Company Number: M1005738

PATIENT
  Age: 53 Year
  Sex: Female

DRUGS (5)
  1. ESTRADIOL [Suspect]
     Indication: PRODUCT USED FOR UNKNOWN INDICATION
  2. BUPIVACAINE (BUPIVACAINE) [Suspect]
     Indication: SPINAL ANAESTHESIA
     Dosage: 1 IN 1 D
  3. DIAMORPHINE (DIAMORPHINE) [Suspect]
     Indication: SPINAL ANAESTHESIA
     Dosage: 1 IN 1 D
  4. DEXAMETHASONE [Suspect]
     Indication: PRODUCT USED FOR UNKNOWN INDICATION
  5. BENDROFLUAZIDE (BENDROFLUMETHIAZIDE) [Concomitant]

REACTIONS (1)
  - MYOCLONUS [None]
